FAERS Safety Report 20818745 (Version 1)
Quarter: 2022Q2

REPORT INFORMATION
  Report Type: Spontaneous
  Country: CA (occurrence: CA)
  Receive Date: 20220512
  Receipt Date: 20220512
  Transmission Date: 20220720
  Serious: Yes (Other)
  Sender: FDA-Public Use
  Company Number: CA-TEVA-2022-CA-2035160

PATIENT
  Sex: Female

DRUGS (3)
  1. ACETAMINOPHEN\OXYCODONE HYDROCHLORIDE [Suspect]
     Active Substance: ACETAMINOPHEN\OXYCODONE HYDROCHLORIDE
     Indication: Product used for unknown indication
     Route: 048
  2. MS CONTIN [Suspect]
     Active Substance: MORPHINE SULFATE
     Indication: Product used for unknown indication
     Route: 048
  3. OXYCONTIN [Suspect]
     Active Substance: OXYCODONE HYDROCHLORIDE
     Indication: Product used for unknown indication
     Route: 048

REACTIONS (23)
  - Alopecia [Unknown]
  - Anxiety [Unknown]
  - Drug dependence [Unknown]
  - Hyperhidrosis [Unknown]
  - Fatigue [Unknown]
  - Depression [Unknown]
  - Diarrhoea [Unknown]
  - Disturbance in attention [Unknown]
  - Emotional distress [Unknown]
  - Impaired quality of life [Unknown]
  - Irritability [Unknown]
  - Mood swings [Unknown]
  - Myalgia [Unknown]
  - Nausea [Unknown]
  - Pain [Unknown]
  - Psychological trauma [Unknown]
  - Rhinorrhoea [Unknown]
  - Tremor [Unknown]
  - Vomiting [Unknown]
  - Weight decreased [Unknown]
  - Withdrawal syndrome [Unknown]
  - Overdose [Unknown]
  - Product use issue [Unknown]
